FAERS Safety Report 22280809 (Version 1)
Quarter: 2023Q2

REPORT INFORMATION
  Report Type: Report from Study
  Country: IT (occurrence: IT)
  Receive Date: 20230503
  Receipt Date: 20230503
  Transmission Date: 20230721
  Serious: Yes (Hospitalization)
  Sender: FDA-Public Use
  Company Number: IT-ABBVIE-4747756

PATIENT
  Age: 53 Year
  Sex: Female

DRUGS (7)
  1. VENETOCLAX [Suspect]
     Active Substance: VENETOCLAX
     Indication: Acute myeloid leukaemia
     Dosage: 400 MILLIGRAM
     Route: 048
     Dates: start: 20230403, end: 20230414
  2. FORTIDOSE [Concomitant]
     Indication: Glaucoma
     Dosage: EYE DROPS
     Dates: start: 2021
  3. CHOLECALCIFEROL [Concomitant]
     Active Substance: CHOLECALCIFEROL
     Indication: Hypovitaminosis
     Dosage: 40
     Dates: start: 202211
  4. PERINDOPRIL [Concomitant]
     Active Substance: PERINDOPRIL
     Indication: Hypertension
     Dates: start: 2013
  5. VIDAZA [Concomitant]
     Active Substance: AZACITIDINE
     Indication: Acute myeloid leukaemia
     Dosage: 75 MG/M2?AZACITIDINE 5 + 2 DAYS QD
     Route: 058
     Dates: start: 20230403, end: 20230411
  6. ACYCLOVIR [Concomitant]
     Active Substance: ACYCLOVIR
     Indication: Product used for unknown indication
     Dosage: 800 MG
     Dates: start: 20230414
  7. ATORVASTATIN [Concomitant]
     Active Substance: ATORVASTATIN
     Indication: Hyperlipidaemia
     Dates: start: 2013

REACTIONS (2)
  - Alanine aminotransferase increased [Not Recovered/Not Resolved]
  - Varicella zoster virus infection [Unknown]

NARRATIVE: CASE EVENT DATE: 20230414
